FAERS Safety Report 4653994-3 (Version None)
Quarter: 2005Q2

REPORT INFORMATION
  Report Type: 
  Country: None (occurrence: None)
  Receive Date: 20050504
  Receipt Date: 20050426
  Transmission Date: 20051028
  Serious: Yes (Death)
  Sender: FDA-Public Use
  Company Number: BRO-008587

PATIENT
  Age: 59 Year
  Sex: Male

DRUGS (2)
  1. IOPAMIDOL-300 [Suspect]
     Indication: ABDOMINAL PAIN
     Dosage: IV
     Route: 042
     Dates: start: 20050421, end: 20050421
  2. IOPAMIDOL-300 [Suspect]
     Indication: COMPUTERISED TOMOGRAM
     Dosage: IV
     Route: 042
     Dates: start: 20050421, end: 20050421

REACTIONS (5)
  - CARDIAC ARREST [None]
  - CARDIOVASCULAR DISORDER [None]
  - INFARCTION [None]
  - RESPIRATORY ARREST [None]
  - SHOCK [None]
